FAERS Safety Report 5734445-4 (Version None)
Quarter: 2008Q2

REPORT INFORMATION
  Report Type: 
  Country: None (occurrence: None)
  Receive Date: 20080508
  Receipt Date: 20080508
  Transmission Date: 20081010
  Serious: Yes (Disabling, Other)
  Sender: FDA-Public Use
  Company Number: None

PATIENT
  Age: 81 Year
  Sex: Male
  Weight: 59 kg

DRUGS (2)
  1. FENTANYL-100 [Suspect]
     Dates: start: 20070110, end: 20070110
  2. MEPERIDINE HCL [Suspect]

REACTIONS (1)
  - BLOOD PRESSURE SYSTOLIC DECREASED [None]
